FAERS Safety Report 8492401-X (Version None)
Quarter: 2012Q3

REPORT INFORMATION
  Report Type: 
  Country: None (occurrence: None)
  Receive Date: 20120706
  Receipt Date: 20120625
  Transmission Date: 20120928
  Serious: Yes (Death)
  Sender: FDA-Public Use
  Company Number: FR-ROCHE-1083955

PATIENT

DRUGS (1)
  1. ALTEPLASE [Suspect]
     Indication: CEREBRAL ISCHAEMIA
     Route: 042

REACTIONS (1)
  - HAEMORRHAGE [None]
